FAERS Safety Report 22118708 (Version 1)
Quarter: 2023Q1

REPORT INFORMATION
  Report Type: Other
  Country: US (occurrence: None)
  Receive Date: 20230321
  Receipt Date: 20230321
  Transmission Date: 20230417
  Serious: No
  Sender: FDA-Public Use
  Company Number: US-ROCHE-3313381

PATIENT
  Age: 52 Year
  Sex: Male

DRUGS (5)
  1. OCREVUS [Suspect]
     Active Substance: OCRELIZUMAB
     Indication: Multiple sclerosis
     Dosage: ONGOING YES?600 MG EVERY 6 MONTHS?10ML SOLUTION
     Route: 042
     Dates: start: 20210122
  2. PREGABALIN [Concomitant]
     Active Substance: PREGABALIN
     Dosage: CAPSULES, 1 CAPSULE TWICE DAILY.
     Dates: start: 20210624
  3. AMANTADINE HYDROCHLORIDE [Concomitant]
     Active Substance: AMANTADINE HYDROCHLORIDE
     Dosage: 1 TABLET TWICE DAILY
     Dates: start: 20170215
  4. BACLOFEN [Concomitant]
     Active Substance: BACLOFEN
     Dosage: 1 TABLET 3 TIME DAILY
  5. ATENOLOL [Concomitant]
     Active Substance: ATENOLOL

REACTIONS (1)
  - COVID-19 [Unknown]
